FAERS Safety Report 5216576-0 (Version None)
Quarter: 2007Q1

REPORT INFORMATION
  Report Type: 
  Country: None (occurrence: None)
  Receive Date: 20070118
  Receipt Date: 20070110
  Transmission Date: 20070707
  Serious: Yes (Hospitalization)
  Sender: FDA-Public Use
  Company Number: 6028932

PATIENT
  Age: 26 Year
  Sex: Female

DRUGS (6)
  1. LEVOTHYROXINE SODIUM [Suspect]
     Indication: THYROIDITIS
     Dosage: 125 MG (125 MG)
     Route: 048
     Dates: start: 20060901
  2. ASPEGIC 1000 [Suspect]
     Indication: PERICARDITIS
     Dosage: ORAL
     Route: 048
     Dates: start: 20061101, end: 20061204
  3. COLCHIMAX                  (COLCHICINE, DICYCLOVERINE HYDROCHLORIDE) [Suspect]
     Indication: PERICARDITIS
     Dosage: 1 DOSAGE FORMS (1 DOSAGE FORMS)
     Route: 048
     Dates: start: 20061118, end: 20061130
  4. IMURAN [Suspect]
     Indication: MIXED CONNECTIVE TISSUE DISEASE
     Dosage: 100 MG (100 MG,1 IN 1 D)
     Route: 048
     Dates: start: 20060901, end: 20061126
  5. AMOXICILLIN [Suspect]
     Indication: PERICARDITIS
     Dosage: 3 GM (1 GM, 3 IN 1 D)
     Route: 048
     Dates: start: 20061118, end: 20061125
  6. RULID        (ROXITHROMYCIN) [Suspect]
     Indication: PERICARDITIS
     Dosage: ORAL
     Route: 048
     Dates: end: 20061118

REACTIONS (20)
  - ALANINE AMINOTRANSFERASE INCREASED [None]
  - ANTI-SS-A ANTIBODY POSITIVE [None]
  - ANTINUCLEAR ANTIBODY POSITIVE [None]
  - ASPARTATE AMINOTRANSFERASE INCREASED [None]
  - BLOOD ALKALINE PHOSPHATASE INCREASED [None]
  - BLOOD CREATINE PHOSPHOKINASE INCREASED [None]
  - BLOOD THYROID STIMULATING HORMONE INCREASED [None]
  - CELL DEATH [None]
  - CHOLESTASIS [None]
  - DNA ANTIBODY POSITIVE [None]
  - GAMMA-GLUTAMYLTRANSFERASE INCREASED [None]
  - HEPATIC ENZYME INCREASED [None]
  - LYMPHOPENIA [None]
  - MYOSITIS [None]
  - PERICARDITIS [None]
  - PULMONARY FIBROSIS [None]
  - PYREXIA [None]
  - RASH MACULO-PAPULAR [None]
  - THROMBOCYTHAEMIA [None]
  - THYROID DISORDER [None]
